FAERS Safety Report 6805395-7 (Version None)
Quarter: 2010Q2

REPORT INFORMATION
  Report Type: 
  Country: None (occurrence: None)
  Receive Date: 20100628
  Receipt Date: 20071217
  Transmission Date: 20101027
  Serious: No
  Sender: FDA-Public Use
  Company Number: US-PFIZER INC-2007077510

PATIENT
  Sex: Female

DRUGS (8)
  1. XALATAN [Suspect]
     Indication: OPEN ANGLE GLAUCOMA
     Dosage: 1 DROP IN EACH EYE AT BEDTIME
     Route: 031
     Dates: start: 20040101
  2. AVALIDE [Concomitant]
  3. CITALOPRAM [Concomitant]
  4. DOXYCYCLINE [Concomitant]
  5. LIPITOR [Concomitant]
  6. FUROSEMIDE [Concomitant]
  7. HYDROCODONE [Concomitant]
  8. METFORMIN HCL [Concomitant]

REACTIONS (5)
  - EYE IRRITATION [None]
  - EYE PRURITUS [None]
  - INTRAOCULAR PRESSURE INCREASED [None]
  - OCULAR HYPERAEMIA [None]
  - POOR QUALITY DRUG ADMINISTERED [None]
